FAERS Safety Report 6964776-1 (Version None)
Quarter: 2010Q3

REPORT INFORMATION
  Report Type: 
  Country: None (occurrence: None)
  Receive Date: 20100903
  Receipt Date: 20100825
  Transmission Date: 20110219
  Serious: Yes (Other)
  Sender: FDA-Public Use
  Company Number: US-PFIZER INC-2010107921

PATIENT
  Sex: Male

DRUGS (2)
  1. CHANTIX [Suspect]
     Indication: SMOKING CESSATION THERAPY
     Dosage: 0.5 MG, 1X/DAY
     Route: 048
     Dates: start: 20100801
  2. CHANTIX [Suspect]
     Dosage: 1 MG, 2X/DAY
     Route: 048
     Dates: start: 20100801, end: 20100817

REACTIONS (2)
  - ANXIETY [None]
  - IRRITABILITY [None]
